FAERS Safety Report 16189411 (Version 1)
Quarter: 2019Q2

REPORT INFORMATION
  Report Type: Spontaneous
  Country: NZ (occurrence: NZ)
  Receive Date: 20190412
  Receipt Date: 20190412
  Transmission Date: 20190711
  Serious: Yes (Hospitalization)
  Sender: FDA-Public Use
  Company Number: NZ-MYLANLABS-2019M1034106

PATIENT
  Age: 45 Year
  Sex: Female

DRUGS (1)
  1. CLOZARIL [Suspect]
     Active Substance: CLOZAPINE
     Indication: SCHIZOPHRENIA
     Dosage: UNK
     Route: 048
     Dates: start: 20020304

REACTIONS (7)
  - Monocyte count increased [Recovered/Resolved]
  - Haematocrit increased [Unknown]
  - Platelet count increased [Unknown]
  - Antinuclear antibody positive [Unknown]
  - C-reactive protein increased [Recovering/Resolving]
  - Blood sodium decreased [Unknown]
  - Monocyte count decreased [Unknown]

NARRATIVE: CASE EVENT DATE: 201903
